FAERS Safety Report 9492006 (Version 1)
Quarter: 2013Q3

REPORT INFORMATION
  Report Type: Spontaneous
  Country: FR (occurrence: FR)
  Receive Date: 20130830
  Receipt Date: 20130830
  Transmission Date: 20140515
  Serious: Yes (Death, Hospitalization)
  Sender: FDA-Public Use
  Company Number: FR-SANOFI-AVENTIS-2013SA085999

PATIENT
  Age: 94 Year
  Sex: Female

DRUGS (7)
  1. LASILIX [Suspect]
     Indication: CARDIAC FAILURE
     Route: 048
     Dates: start: 20130424
  2. BISOPROLOL [Concomitant]
  3. DIFFU K [Concomitant]
     Route: 048
  4. VITAMIN B12 [Concomitant]
  5. DOLIPRANE [Concomitant]
     Route: 048
  6. KARDEGIC [Concomitant]
     Route: 048
  7. RISPERDAL [Concomitant]
     Route: 048

REACTIONS (9)
  - Hypovolaemic shock [Fatal]
  - Pyrexia [Fatal]
  - Dehydration [Fatal]
  - General physical health deterioration [Fatal]
  - Renal failure acute [Fatal]
  - Blood creatine increased [Fatal]
  - Azotaemia [Fatal]
  - Hypernatraemia [Fatal]
  - Oedema peripheral [Fatal]
